FAERS Safety Report 5060889-2 (Version None)
Quarter: 2006Q3

REPORT INFORMATION
  Report Type: 
  Country: None (occurrence: None)
  Receive Date: 20060725
  Receipt Date: 20060102
  Transmission Date: 20061208
  Serious: Yes (Hospitalization)
  Sender: FDA-Public Use
  Company Number: PHBS2006NO00455

PATIENT
  Age: 61 Year
  Sex: Male

DRUGS (8)
  1. SELO-ZOK [Concomitant]
     Indication: HYPERTENSION
     Dosage: 50 MG, QD
  2. OXYNORM [Concomitant]
     Indication: ANALGESIC THERAPY
     Dosage: 20 MG, PRN, MAXIMUM 6 TABLETS/D
     Route: 048
  3. IMOVANE [Concomitant]
     Indication: INSOMNIA
     Dosage: 7.5 MG/D
     Route: 048
  4. ZOMETA [Suspect]
     Indication: OSTEOPOROSIS
     Dosage: 4 MG, QMO
     Dates: start: 20020612, end: 20060105
  5. ZOLOFT [Concomitant]
     Indication: ANTIDEPRESSANT THERAPY
     Dosage: 50 MG, BID
     Route: 048
  6. NEXIUM [Concomitant]
     Indication: ANTACID THERAPY
     Dosage: 20 MG, BID
     Route: 048
  7. DIOVAN [Concomitant]
     Indication: HYPERTENSION
     Dosage: 80 MG, QD
     Route: 048
  8. DURAGESIC-100 [Concomitant]
     Indication: ANALGESIC THERAPY
     Dosage: UNK, EACH THIRD DAY
     Route: 062

REACTIONS (7)
  - BONE DEBRIDEMENT [None]
  - HAEMORRHAGE [None]
  - HYPERBARIC OXYGEN THERAPY [None]
  - IMPAIRED HEALING [None]
  - OSTEONECROSIS [None]
  - SURGERY [None]
  - TOOTH EXTRACTION [None]
